FAERS Safety Report 8828174 (Version 1)
Quarter: 2012Q4

REPORT INFORMATION
  Report Type: 
  Country: BR (occurrence: BR)
  Receive Date: 20121005
  Receipt Date: 20121005
  Transmission Date: 20130627
  Serious: Yes (Other)
  Sender: FDA-Public Use
  Company Number: BR-PFIZER INC-2012245120

PATIENT
  Age: 69 Year
  Sex: Male

DRUGS (1)
  1. LYRICA [Suspect]
     Indication: DIABETIC NEUROPATHY
     Dosage: two capsules daily
     Route: 048
     Dates: start: 201209

REACTIONS (3)
  - Peripheral arterial occlusive disease [Unknown]
  - Hypoaesthesia [Unknown]
  - Peripheral coldness [Unknown]
